FAERS Safety Report 8244511-X (Version None)
Quarter: 2012Q1

REPORT INFORMATION
  Report Type: 
  Country: None (occurrence: None)
  Receive Date: 20120329
  Receipt Date: 20120322
  Transmission Date: 20120608
  Serious: Yes (Hospitalization)
  Sender: FDA-Public Use
  Company Number: ZA-ABBOTT-12P-143-0917896-00

PATIENT
  Sex: Male

DRUGS (3)
  1. HUMIRA [Suspect]
     Indication: PSORIASIS
     Dates: start: 20110112, end: 20120216
  2. FOLIC ACID [Concomitant]
     Indication: VITAMIN SUPPLEMENTATION
     Route: 048
  3. METHOTREXATE [Concomitant]
     Indication: PSORIASIS
     Route: 048

REACTIONS (4)
  - PYREXIA [None]
  - PSORIASIS [None]
  - LIVER FUNCTION TEST ABNORMAL [None]
  - DRUG INEFFECTIVE [None]
